FAERS Safety Report 9518687 (Version 1)
Quarter: 2013Q3

REPORT INFORMATION
  Report Type: Report from Study
  Country: NL (occurrence: NL)
  Receive Date: 20130912
  Receipt Date: 20130912
  Transmission Date: 20140515
  Serious: Yes (Death)
  Sender: FDA-Public Use
  Company Number: PHHY2013NL100366

PATIENT
  Sex: Female

DRUGS (3)
  1. ZOMETA [Suspect]
     Indication: OSTEOPOROSIS
     Dosage: 4 MG\100 ML ONCE EVERY 52 WEEKS
  2. ZOMETA [Suspect]
     Indication: OFF LABEL USE
     Dosage: 4 MG\100 ML ONCE EVERY 52 WEEKS
     Dates: start: 20110929
  3. ZOMETA [Suspect]
     Dosage: 4 MG\100 ML ONCE EVERY 52 WEEKS

REACTIONS (1)
  - Death [Fatal]
